FAERS Safety Report 10753616 (Version 1)
Quarter: 2015Q1

REPORT INFORMATION
  Report Type: Spontaneous
  Country: US (occurrence: None)
  Receive Date: 20150129
  Receipt Date: 20150129
  Transmission Date: 20150721
  Serious: No
  Sender: FDA-Public Use
  Company Number: None

PATIENT
  Age: 65 Year
  Sex: Male
  Weight: 150.6 kg

DRUGS (3)
  1. PENTASA [Suspect]
     Active Substance: MESALAMINE
     Indication: TYPE 2 DIABETES MELLITUS
     Dosage: 6 CAPS DAILY , ONCE DAILY   TAKEN BY MOUTH
     Dates: start: 20140913, end: 20150127
  2. PENTASA [Suspect]
     Active Substance: MESALAMINE
     Indication: LIVER DISORDER
     Dosage: 6 CAPS DAILY , ONCE DAILY   TAKEN BY MOUTH
     Dates: start: 20140913, end: 20150127
  3. PENTASA [Suspect]
     Active Substance: MESALAMINE
     Indication: CROHN^S DISEASE
     Dosage: 6 CAPS DAILY , ONCE DAILY   TAKEN BY MOUTH
     Dates: start: 20140913, end: 20150127

REACTIONS (2)
  - Gingival pain [None]
  - Toothache [None]
